FAERS Safety Report 11771029 (Version 1)
Quarter: 2015Q4

REPORT INFORMATION
  Report Type: Spontaneous
  Country: US (occurrence: US)
  Receive Date: 20151124
  Receipt Date: 20151124
  Transmission Date: 20160304
  Serious: Yes (Other)
  Sender: FDA-Public Use
  Company Number: US-HOSPIRA-3084420

PATIENT

DRUGS (5)
  1. PREDNISOLONE ACETATE. [Concomitant]
     Active Substance: PREDNISOLONE ACETATE
     Indication: PRODUCT USED FOR UNKNOWN INDICATION
     Dosage: IN THE EYE UNDERGOING SURGERY 3 DAYS PRIOR TO SURGERY
     Route: 047
  2. CEFUROXIME SODIUM. [Suspect]
     Active Substance: CEFUROXIME SODIUM
     Indication: PROPHYLAXIS
     Dosage: 9 MG/0.1 ML
     Route: 031
  3. DICLOFENAC [Concomitant]
     Active Substance: DICLOFENAC
     Indication: PRODUCT USED FOR UNKNOWN INDICATION
     Dosage: IN THE EYE UNDERGOING SURGERY 3 DAYS PRIOR TO SURGERY
     Route: 047
  4. OFLOXACIN. [Concomitant]
     Active Substance: OFLOXACIN
     Indication: PRODUCT USED FOR UNKNOWN INDICATION
     Dosage: IN THE EYE UNDERGOING SURGERY 3 DAYS PRIOR TO SURGERY
     Route: 047
  5. CEFUROXIME SODIUM. [Suspect]
     Active Substance: CEFUROXIME SODIUM
     Indication: ENDOPHTHALMITIS
     Dosage: 9 MG/0.1 ML
     Route: 031

REACTIONS (5)
  - Macular oedema [Recovered/Resolved]
  - Product preparation error [Recovered/Resolved]
  - Visual acuity reduced [Recovered/Resolved]
  - Incorrect dose administered [Recovered/Resolved]
  - Product use issue [Recovered/Resolved]
